FAERS Safety Report 7648627-8 (Version None)
Quarter: 2011Q3

REPORT INFORMATION
  Report Type: 
  Country: None (occurrence: None)
  Receive Date: 20110801
  Receipt Date: 20110721
  Transmission Date: 20111222
  Serious: Yes (Hospitalization, Disabling, Other)
  Sender: FDA-Public Use
  Company Number: PHHY2011AU60680

PATIENT
  Sex: Male
  Weight: 110 kg

DRUGS (5)
  1. CLOZAPINE [Suspect]
     Dosage: 400 MG, DAILY
     Route: 048
     Dates: start: 20110718
  2. CLOZAPINE [Suspect]
     Indication: SCHIZOPHRENIA
     Dosage: 450 MG, DAILY
     Route: 048
     Dates: start: 19951121, end: 20110718
  3. LEXAPRO [Concomitant]
     Indication: AFFECTIVE DISORDER
     Dosage: 10 MG, UNK
  4. INSULIN [Concomitant]
  5. METFORMIN HCL [Concomitant]
     Indication: DIABETES MELLITUS
     Dosage: 1 G, TID

REACTIONS (7)
  - MALAISE [None]
  - PALLOR [None]
  - LEFT VENTRICULAR HYPERTROPHY [None]
  - SUICIDAL IDEATION [None]
  - HYPERTENSION [None]
  - CARDIAC DISORDER [None]
  - FATIGUE [None]
